FAERS Safety Report 9753798 (Version 1)
Quarter: 2013Q4

REPORT INFORMATION
  Report Type: Spontaneous
  Country: US (occurrence: US)
  Receive Date: 20131213
  Receipt Date: 20131213
  Transmission Date: 20140711
  Serious: No
  Sender: FDA-Public Use
  Company Number: US-GILEAD-2010-0027085

PATIENT
  Age: 70 Year
  Sex: Female
  Weight: 57.15 kg

DRUGS (12)
  1. LETAIRIS [Suspect]
     Indication: PULMONARY ARTERIAL HYPERTENSION
     Route: 048
  2. SINEMET [Concomitant]
  3. ALLEGRA [Concomitant]
  4. LASIX [Concomitant]
  5. FEXOFENADINE [Concomitant]
  6. FLONASE [Concomitant]
  7. SPIRONOLACTONE [Concomitant]
  8. KLOR-CON [Concomitant]
  9. PROZAC [Concomitant]
  10. OMEPRAZOLE [Concomitant]
  11. TYVASO [Concomitant]
  12. ADCIRCA [Concomitant]

REACTIONS (1)
  - Weight increased [Not Recovered/Not Resolved]
